FAERS Safety Report 8596238 (Version 3)
Quarter: 2014Q1

REPORT INFORMATION
  Report Type: Spontaneous
  Country: US (occurrence: US)
  Receive Date: 20120605
  Receipt Date: 20140107
  Transmission Date: 20141002
  Serious: Yes (Hospitalization)
  Sender: FDA-Public Use
  Company Number: US-ASTRAZENECA-2012SE35073

PATIENT
  Age: 24552 Day
  Sex: Female
  Weight: 72.6 kg

DRUGS (7)
  1. NEXIUM [Suspect]
     Route: 048
     Dates: start: 2005
  2. NEXIUM [Suspect]
     Route: 048
     Dates: start: 20100901
  3. ALKA-SELTZER [Concomitant]
  4. CARISOPRODOL [Concomitant]
  5. LORAZEPAM [Concomitant]
  6. LOSARTAN POTASSIUM [Concomitant]
     Indication: BLOOD PRESSURE
  7. A-Z MULTI VITAMINS [Concomitant]

REACTIONS (5)
  - Animal bite [Unknown]
  - Osteoporosis [Unknown]
  - Fracture [Unknown]
  - Multiple fractures [Unknown]
  - Joint injury [Unknown]
